FAERS Safety Report 6014738-6 (Version None)
Quarter: 2008Q4

REPORT INFORMATION
  Report Type: 
  Country: None (occurrence: None)
  Receive Date: 20081203
  Receipt Date: 20071113
  Transmission Date: 20090506
  Serious: Yes (Death)
  Sender: FDA-Public Use
  Company Number: 164157USA

PATIENT
  Sex: Female

DRUGS (2)
  1. DEXTROPROPOXYPHENE HYDROCHLORIDE 65 MG CAPSULES (DEXTROPROPOXYPHENE) [Suspect]
     Indication: BACK PAIN
  2. DEXTROPROPOXYPHENE HYDROCHLORIDE 65 MG CAPSULES (DEXTROPROPOXYPHENE) [Suspect]
     Indication: PROCEDURAL PAIN

REACTIONS (1)
  - DEATH [None]
